FAERS Safety Report 7030751-4 (Version None)
Quarter: 2010Q4

REPORT INFORMATION
  Report Type: 
  Country: None (occurrence: None)
  Receive Date: 20101006
  Receipt Date: 20100825
  Transmission Date: 20110411
  Serious: No
  Sender: FDA-Public Use
  Company Number: US-BAYER-201020583BCC

PATIENT
  Age: 61 Year
  Sex: Male
  Weight: 109 kg

DRUGS (13)
  1. ALEVE (CAPLET) [Suspect]
     Indication: ARTHRALGIA
     Dosage: TOTAL DAILY DOSE: 220 MG  UNIT DOSE: 220 MG
     Route: 048
     Dates: start: 20090101
  2. ADVAIR DISKUS 100/50 [Concomitant]
  3. SPIRIVA [Concomitant]
  4. ALLOPURINOL [Concomitant]
  5. GABAPENTIN [Concomitant]
  6. HYDROCODONE [Concomitant]
  7. AMLODIPINE BESYLATE [Concomitant]
  8. TRIAMTERENE [Concomitant]
  9. FLURAZEPAM HCL [Concomitant]
  10. FOLIC ACID [Concomitant]
  11. VITAMIN D [Concomitant]
  12. TARGET MULTI VITAMIN [Concomitant]
  13. VITAMIN B COMPLEX CAP [Concomitant]

REACTIONS (1)
  - CONTUSION [None]
